FAERS Safety Report 7573784-1 (Version None)
Quarter: 2011Q2

REPORT INFORMATION
  Report Type: 
  Country: None (occurrence: None)
  Receive Date: 20110627
  Receipt Date: 20110622
  Transmission Date: 20111010
  Serious: Yes (Death, Other)
  Sender: FDA-Public Use
  Company Number: AU-ROCHE-785367

PATIENT

DRUGS (1)
  1. AVASTIN [Suspect]
     Route: 065

REACTIONS (2)
  - DEATH [None]
  - CEREBRAL HAEMORRHAGE [None]
